FAERS Safety Report 16575742 (Version 2)
Quarter: 2019Q3

REPORT INFORMATION
  Report Type: Spontaneous
  Country: US (occurrence: US)
  Receive Date: 20190716
  Receipt Date: 20190725
  Transmission Date: 20191004
  Serious: Yes (Other)
  Sender: FDA-Public Use
  Company Number: US-AUROBINDO-AUR-APL-2019-039615

PATIENT

DRUGS (6)
  1. FLUTICASONE PROPIONATE. [Interacting]
     Active Substance: FLUTICASONE PROPIONATE
     Indication: RESPIRATORY DISORDER
     Dosage: UNK
  2. FLUCONAZOLE. [Interacting]
     Active Substance: FLUCONAZOLE
     Indication: MENINGITIS COCCIDIOIDES
  3. FLUTICASONE PROPIONATE. [Interacting]
     Active Substance: FLUTICASONE PROPIONATE
     Indication: MENINGITIS COCCIDIOIDES
  4. POSACONAZOLE [Suspect]
     Active Substance: POSACONAZOLE
     Indication: ANTIFUNGAL TREATMENT
     Dosage: 200 MILLIGRAM, DAILY
     Route: 065
  5. FLUCONAZOLE. [Suspect]
     Active Substance: FLUCONAZOLE
     Indication: ANTIFUNGAL TREATMENT
     Dosage: UNK
     Route: 065
  6. FLUCONAZOLE. [Interacting]
     Active Substance: FLUCONAZOLE
     Indication: RESPIRATORY DISORDER

REACTIONS (9)
  - Cushingoid [Recovered/Resolved]
  - Alopecia [Unknown]
  - Adrenal insufficiency [Recovered/Resolved]
  - Osteoporosis [Recovered/Resolved]
  - Fatigue [Unknown]
  - Bone density decreased [Recovered/Resolved]
  - Femur fracture [Unknown]
  - Growth failure [Recovered/Resolved]
  - Drug interaction [Recovered/Resolved]
